FAERS Safety Report 20166426 (Version 2)
Quarter: 2022Q2

REPORT INFORMATION
  Report Type: Spontaneous
  Country: CO (occurrence: CO)
  Receive Date: 20211209
  Receipt Date: 20220504
  Transmission Date: 20220720
  Serious: No
  Sender: FDA-Public Use
  Company Number: CO-PFIZER INC-2021131704

PATIENT
  Age: 12 Year
  Sex: Female

DRUGS (1)
  1. GENOTROPIN [Suspect]
     Active Substance: SOMATROPIN
     Dosage: 1.6 MG, DAILY
     Route: 058
     Dates: end: 20210202

REACTIONS (2)
  - Poor quality device used [Unknown]
  - Device information output issue [Unknown]

NARRATIVE: CASE EVENT DATE: 20210101
